FAERS Safety Report 6847595-6 (Version None)
Quarter: 2010Q3

REPORT INFORMATION
  Report Type: 
  Country: None (occurrence: None)
  Receive Date: 20100716
  Receipt Date: 20100708
  Transmission Date: 20110219
  Serious: Yes (Hospitalization)
  Sender: FDA-Public Use
  Company Number: US-PFIZER INC-2010077142

PATIENT
  Sex: Male

DRUGS (1)
  1. SUTENT [Suspect]
     Indication: METASTATIC RENAL CELL CARCINOMA
     Dosage: 12.5 MG, 4X/DAY, CYCLE 4/2, FOR 28 DAYS, EVERY 42 DAYS
     Dates: start: 20100608, end: 20100626

REACTIONS (4)
  - CLOSTRIDIAL INFECTION [None]
  - DYSPNOEA [None]
  - GASTROINTESTINAL INFECTION [None]
  - HYPOTENSION [None]
